FAERS Safety Report 24848025 (Version 1)
Quarter: 2025Q1

REPORT INFORMATION
  Report Type: Spontaneous
  Country: US (occurrence: US)
  Receive Date: 20250116
  Receipt Date: 20250116
  Transmission Date: 20250408
  Serious: Yes (Hospitalization)
  Sender: NOVITIUM PHARMA
  Company Number: US-NOVITIUMPHARMA-2025USNVP00073

PATIENT
  Age: 41 Year
  Sex: Female

DRUGS (4)
  1. PREDNISONE [Suspect]
     Active Substance: PREDNISONE
     Indication: Myasthenia gravis
  2. METHOTREXATE [Concomitant]
     Active Substance: METHOTREXATE
     Indication: Myasthenia gravis
  3. Suxamethonium-chloride [Concomitant]
     Indication: Myasthenia gravis
  4. PYRIDOSTIGMINE [Concomitant]
     Active Substance: PYRIDOSTIGMINE
     Indication: Myasthenia gravis

REACTIONS (1)
  - Treatment noncompliance [Unknown]
